FAERS Safety Report 7101640-1 (Version None)
Quarter: 2010Q4

REPORT INFORMATION
  Report Type: 
  Country: None (occurrence: None)
  Receive Date: 20101115
  Receipt Date: 20101101
  Transmission Date: 20110411
  Serious: Yes (Other)
  Sender: FDA-Public Use
  Company Number: US-BAYER-201027412NA

PATIENT
  Age: 25 Year
  Sex: Female
  Weight: 52 kg

DRUGS (3)
  1. YAZ [Suspect]
     Indication: PREMENSTRUAL SYNDROME
     Route: 048
     Dates: start: 20090628, end: 20090701
  2. YASMIN [Suspect]
     Indication: PRODUCT USED FOR UNKNOWN INDICATION
     Route: 048
  3. NSAIDS NOS [Concomitant]

REACTIONS (2)
  - CEREBROVASCULAR ACCIDENT [None]
  - VIITH NERVE PARALYSIS [None]
